FAERS Safety Report 18319157 (Version 1)
Quarter: 2020Q3

REPORT INFORMATION
  Report Type: Spontaneous
  Country: US (occurrence: US)
  Receive Date: 20200928
  Receipt Date: 20200928
  Transmission Date: 20201103
  Serious: Yes (Hospitalization)
  Sender: FDA-Public Use
  Company Number: None

PATIENT
  Age: 31 Year
  Sex: Male
  Weight: 81 kg

DRUGS (4)
  1. MELATONIN [Concomitant]
     Active Substance: MELATONIN
  2. DULOXETINE 30MG [Concomitant]
     Active Substance: DULOXETINE
     Dates: start: 20200823
  3. SAVAGE SARM STACK [Suspect]
     Active Substance: DIETARY SUPPLEMENT\ENOBOSARM
     Indication: NUTRITIONAL SUPPLEMENTATION
     Route: 048
     Dates: start: 20200904, end: 20200915
  4. MIRTAZAPINE 45MG [Concomitant]
     Active Substance: MIRTAZAPINE
     Dates: start: 20200803

REACTIONS (1)
  - Delusion [None]

NARRATIVE: CASE EVENT DATE: 20200915
